FAERS Safety Report 9183758 (Version 1)
Quarter: 2013Q1

REPORT INFORMATION
  Report Type: Spontaneous
  Country: US (occurrence: US)
  Receive Date: 20130322
  Receipt Date: 20130322
  Transmission Date: 20140127
  Serious: No
  Sender: FDA-Public Use
  Company Number: US-TARO-2012P1040708

PATIENT
  Age: 69 Year
  Sex: Female
  Weight: 81.65 kg

DRUGS (11)
  1. NYSTATIN [Suspect]
     Indication: ORAL CANDIDIASIS
     Route: 048
     Dates: start: 20111007, end: 201202
  2. NYSTATIN [Suspect]
     Indication: ORAL CANDIDIASIS
     Route: 048
     Dates: start: 2012
  3. CAPTOPRIL [Concomitant]
  4. DILTIAZEM [Concomitant]
  5. AMARYL [Concomitant]
  6. METFORMIN [Concomitant]
  7. LIPITOR [Concomitant]
  8. ACIPHEX [Concomitant]
  9. BISOPROLOL [Concomitant]
  10. ADVIL [Concomitant]
  11. LORAZEPAM [Concomitant]

REACTIONS (6)
  - Drug effect incomplete [Not Recovered/Not Resolved]
  - Oral discomfort [Not Recovered/Not Resolved]
  - Oral pain [Not Recovered/Not Resolved]
  - Oral candidiasis [Not Recovered/Not Resolved]
  - Hypoglycaemia [Unknown]
  - Decreased appetite [Unknown]
